FAERS Safety Report 10407541 (Version 2)
Quarter: 2014Q3

REPORT INFORMATION
  Report Type: Spontaneous
  Country: JP (occurrence: JP)
  Receive Date: 20140825
  Receipt Date: 20140922
  Transmission Date: 20150326
  Serious: Yes (Other)
  Sender: FDA-Public Use
  Company Number: JP-PFIZER INC-2014232052

PATIENT
  Age: 61 Year
  Sex: Female

DRUGS (3)
  1. INLYTA [Suspect]
     Active Substance: AXITINIB
     Dosage: 6 MG, DAILY
     Route: 048
     Dates: start: 20140728, end: 20140803
  2. INLYTA [Suspect]
     Active Substance: AXITINIB
     Dosage: 6 MG, DAILY
     Route: 048
     Dates: start: 20140507, end: 20140714
  3. INLYTA [Suspect]
     Active Substance: AXITINIB
     Indication: METASTATIC RENAL CELL CARCINOMA
     Dosage: 10 MG, DAILY
     Route: 048
     Dates: start: 20140420, end: 20140427

REACTIONS (3)
  - Cerebral infarction [Recovered/Resolved]
  - Cerebral infarction [Recovering/Resolving]
  - Pyrexia [Recovered/Resolved]

NARRATIVE: CASE EVENT DATE: 20140427
